FAERS Safety Report 25336626 (Version 1)
Quarter: 2025Q2

REPORT INFORMATION
  Report Type: Spontaneous
  Country: US (occurrence: US)
  Receive Date: 20250520
  Receipt Date: 20250520
  Transmission Date: 20250717
  Serious: Yes (Other)
  Sender: SANOFI AVENTIS
  Company Number: US-SA-2025SA143562

PATIENT
  Sex: Female
  Weight: 75.45 kg

DRUGS (10)
  1. DUPIXENT [Suspect]
     Active Substance: DUPILUMAB
     Indication: Nasal polyps
     Dosage: 300 MG, QOW
     Route: 058
  2. TIRZEPATIDE [Concomitant]
     Active Substance: TIRZEPATIDE
     Indication: Weight control
  3. IRON [Concomitant]
     Active Substance: IRON
  4. CYANOCOBALAMIN [Concomitant]
     Active Substance: CYANOCOBALAMIN
  5. BIOTIN [Concomitant]
     Active Substance: BIOTIN
  6. ALBUTEROL SULFATE [Concomitant]
     Active Substance: ALBUTEROL SULFATE
  7. DOCUSATE CALCIUM [Concomitant]
     Active Substance: DOCUSATE CALCIUM
  8. FLUTICASONE PROPIONATE [Concomitant]
     Active Substance: FLUTICASONE PROPIONATE
  9. CELECOXIB [Concomitant]
     Active Substance: CELECOXIB
  10. ZYRTEC [Concomitant]
     Active Substance: CETIRIZINE HYDROCHLORIDE

REACTIONS (2)
  - Cerebrovascular accident [Not Recovered/Not Resolved]
  - Limb discomfort [Not Recovered/Not Resolved]

NARRATIVE: CASE EVENT DATE: 20250401
